FAERS Safety Report 25726121 (Version 1)
Quarter: 2025Q3

REPORT INFORMATION
  Report Type: Spontaneous
  Country: US (occurrence: US)
  Receive Date: 20250826
  Receipt Date: 20250826
  Transmission Date: 20251020
  Serious: No
  Sender: BLUEPRINT MEDICINES
  Company Number: US-Blueprint Medicines Corporation-2025-AER-01856

PATIENT
  Age: 77 Year
  Sex: Female

DRUGS (1)
  1. AYVAKIT [Suspect]
     Active Substance: AVAPRITINIB
     Indication: Systemic mastocytosis
     Dosage: (MORNING)
     Route: 048
     Dates: start: 20250626

REACTIONS (5)
  - Rash [Recovering/Resolving]
  - Pruritus [Recovered/Resolved]
  - Contusion [Unknown]
  - Impaired healing [Unknown]
  - Product dose omission issue [Unknown]
